FAERS Safety Report 12439865 (Version 5)
Quarter: 2016Q3

REPORT INFORMATION
  Report Type: Spontaneous
  Country: NL (occurrence: NL)
  Receive Date: 20160606
  Receipt Date: 20160722
  Transmission Date: 20161109
  Serious: Yes (Death, Other)
  Sender: FDA-Public Use
  Company Number: PHHY2016NL073198

PATIENT
  Age: 48 Year
  Sex: Male

DRUGS (14)
  1. HYDROCORTISONE. [Suspect]
     Active Substance: HYDROCORTISONE
     Indication: IMMUNOSUPPRESSANT DRUG THERAPY
  2. BASILIXIMAB [Suspect]
     Active Substance: BASILIXIMAB
     Indication: LIVER TRANSPLANT
     Dosage: 20 MG, UNK
     Route: 065
  3. TOBRAMYCIN. [Concomitant]
     Active Substance: TOBRAMYCIN
     Indication: PRODUCT USED FOR UNKNOWN INDICATION
     Dosage: 2 %, UNK
     Route: 065
  4. BASILIXIMAB [Suspect]
     Active Substance: BASILIXIMAB
     Indication: IMMUNOSUPPRESSANT DRUG THERAPY
  5. AMPHOTERICIN B. [Suspect]
     Active Substance: AMPHOTERICIN B
     Indication: PROPHYLAXIS
     Dosage: 0.3 MG/KG, QD
     Route: 042
  6. HYDROCORTISONE. [Suspect]
     Active Substance: HYDROCORTISONE
     Indication: LIVER TRANSPLANT
     Dosage: 4 MG, QH
     Route: 042
  7. FLUCONAZOLE. [Suspect]
     Active Substance: FLUCONAZOLE
     Indication: PROPHYLAXIS
     Dosage: 100 MG, QD
     Route: 042
  8. MEROPENEM. [Suspect]
     Active Substance: MEROPENEM
     Indication: PERITONITIS BACTERIAL
     Dosage: 1000 MG, BID
     Route: 042
  9. CEFTRIAXONE. [Suspect]
     Active Substance: CEFTRIAXONE
     Indication: PERITONITIS BACTERIAL
     Dosage: 2000 MG, QD
     Route: 042
  10. VORICONAZOLE. [Suspect]
     Active Substance: VORICONAZOLE
     Indication: PROPHYLAXIS
     Dosage: 200 MG, BID
     Route: 042
  11. PIPERACILLIN, TAZOBACTAM [Suspect]
     Active Substance: PIPERACILLIN SODIUM\TAZOBACTAM SODIUM
     Indication: PERITONITIS BACTERIAL
     Dosage: 4000 MG, TID
     Route: 042
  12. PIPERACILLIN, TAZOBACTAM [Suspect]
     Active Substance: PIPERACILLIN SODIUM\TAZOBACTAM SODIUM
     Dosage: 4000 MG, TID
     Route: 042
  13. POLYMYXIN B. [Concomitant]
     Active Substance: POLYMYXIN B
     Indication: PRODUCT USED FOR UNKNOWN INDICATION
     Dosage: 2 %, UNK
     Route: 065
  14. AMPHOTERICIN B, LIPOSOME [Concomitant]
     Active Substance: AMPHOTERICIN B
     Indication: PROPHYLAXIS
     Dosage: 5 MG/KG, QD
     Route: 042

REACTIONS (6)
  - Trichosporon infection [Fatal]
  - Abdominal compartment syndrome [Unknown]
  - Drug resistance [Unknown]
  - Treatment failure [Unknown]
  - Multiple organ dysfunction syndrome [Fatal]
  - Cholangitis [Unknown]
